FAERS Safety Report 4490092-6 (Version None)
Quarter: 2004Q4

REPORT INFORMATION
  Report Type: 
  Country: None (occurrence: None)
  Receive Date: 20041027
  Receipt Date: 20041025
  Transmission Date: 20050328
  Serious: Yes (Hospitalization, Other)
  Sender: FDA-Public Use
  Company Number: 200420578BWH

PATIENT
  Age: 68 Year
  Sex: Male

DRUGS (4)
  1. LEVITRA [Suspect]
     Indication: ERECTILE DYSFUNCTION
     Dosage: 20  MG, ONCE, ORAL
     Route: 048
     Dates: start: 20040801
  2. LISINOPRIL [Concomitant]
  3. ASPIRIN [Concomitant]
  4. VIAGRA [Concomitant]

REACTIONS (4)
  - AMNESIA [None]
  - CEREBRAL HAEMORRHAGE [None]
  - HYPERTENSION [None]
  - MEDICATION ERROR [None]
